FAERS Safety Report 4463561-2 (Version None)
Quarter: 2004Q3

REPORT INFORMATION
  Report Type: 
  Country: None (occurrence: None)
  Receive Date: 20040917
  Receipt Date: 20040603
  Transmission Date: 20050211
  Serious: No
  Sender: FDA-Public Use
  Company Number: US-JNJFOC-20031005758

PATIENT
  Age: 28 Year
  Sex: Female
  Weight: 87.9978 kg

DRUGS (10)
  1. ORTHO EVRA [Suspect]
     Indication: CONTRACEPTION
     Dosage: 1 DOSE(S), 3 IN 4 WEEK, TRANSDERMAL
     Route: 062
     Dates: start: 20040903
  2. ORAL CONTRACEPTIVE NOS (ORAL CONTRACEPTIVE NOS) TABLETS [Suspect]
     Indication: CONTRACEPTION
     Dosage: 1 DOSE(S), 1 IN 1 DAY, ORAL
     Route: 048
  3. SYNTHROID [Concomitant]
  4. CLARINEX [Concomitant]
  5. LAMICTAL [Concomitant]
  6. WELLBUTRIN XL (BUPROPION HYDROCHLORIDE) [Concomitant]
  7. LIPITOR [Concomitant]
  8. KLONAPIN (CLONEZAPAM) [Concomitant]
  9. RISPERDAL [Concomitant]
  10. ATIVAN [Concomitant]

REACTIONS (1)
  - METRORRHAGIA [None]
